FAERS Safety Report 10543387 (Version 1)
Quarter: 2014Q4

REPORT INFORMATION
  Report Type: Spontaneous
  Country: US (occurrence: None)
  Receive Date: 20141010
  Receipt Date: 20141010
  Transmission Date: 20150529
  Serious: No
  Sender: FDA-Public Use
  Company Number: None

PATIENT
  Age: 69 Year
  Sex: Male

DRUGS (20)
  1. POMALYST [Suspect]
     Active Substance: POMALIDOMIDE
     Indication: PLASMA CELL MYELOMA
     Dosage: 21 IN 28 D
     Route: 048
     Dates: start: 20140123, end: 20140125
  2. LINZESS [Concomitant]
     Active Substance: LINACLOTIDE
  3. BUTRANS [Concomitant]
     Active Substance: BUPRENORPHINE
  4. AMITRIPTYLINE (AMITRIPTYLINE) [Concomitant]
     Active Substance: AMITRIPTYLINE
  5. DECADRON [Concomitant]
     Active Substance: DEXAMETHASONE
  6. FENTANYL (FENTANYL) [Concomitant]
     Active Substance: FENTANYL
  7. ENDOCET (OXYCOCET) [Concomitant]
  8. ONDANSETRON HCL (ONDANSETRON HYDROCHLORIDE) [Concomitant]
     Active Substance: ONDANSETRON HYDROCHLORIDE
  9. NORTRIPTYLINE (NORTRIPTYLINE) [Concomitant]
     Active Substance: NORTRIPTYLINE
  10. NEXIUM [Concomitant]
     Active Substance: ESOMEPRAZOLE MAGNESIUM
  11. OMEGA 3 (FISH OIL) [Concomitant]
     Active Substance: OMEGA-3 FATTY ACIDS
  12. MULTIVITAMINS (MULTIVITAMINS) [Concomitant]
     Active Substance: VITAMINS
  13. EDEX [Concomitant]
     Active Substance: ALPROSTADIL
  14. OXYCODONE (OXYCODONE) [Concomitant]
     Active Substance: OXYCODONE
  15. TRIAZOLAM (TRIAZOLAM) [Concomitant]
     Active Substance: TRIAZOLAM
  16. VENLAFAXINE [Concomitant]
     Active Substance: VENLAFAXINE HYDROCHLORIDE
  17. LIDODERM [Concomitant]
     Active Substance: LIDOCAINE
  18. VITAMIN D3 (CHOLECALCIFEROL) [Concomitant]
  19. ATENOLOL (ATENOLOL) [Concomitant]
     Active Substance: ATENOLOL
  20. HALCION (TRIAZOLAM) [Concomitant]

REACTIONS (7)
  - Dizziness [None]
  - Confusional state [None]
  - Hypoaesthesia [None]
  - Fatigue [None]
  - Disturbance in attention [None]
  - Tinnitus [None]
  - Dyspnoea [None]

NARRATIVE: CASE EVENT DATE: 2014
